FAERS Safety Report 4504719-3 (Version None)
Quarter: 2004Q4

REPORT INFORMATION
  Report Type: 
  Country: None (occurrence: None)
  Receive Date: 20041118
  Receipt Date: 20011030
  Transmission Date: 20050328
  Serious: Yes (Hospitalization, Disabling)
  Sender: FDA-Public Use
  Company Number: PE-MERCK-01109472

PATIENT
  Age: 52 Year
  Sex: Female

DRUGS (3)
  1. VIOXX [Suspect]
     Indication: TENDONITIS
     Route: 048
     Dates: start: 20010801, end: 20010801
  2. VIOXX [Suspect]
     Route: 048
     Dates: start: 20010801, end: 20010801
  3. CELECOXIB [Concomitant]
     Indication: TENDONITIS
     Route: 048
     Dates: start: 20010701, end: 20010701

REACTIONS (10)
  - BRONCHOSPASM [None]
  - CHEST PAIN [None]
  - DIFFICULTY IN WALKING [None]
  - DRUG INEFFECTIVE [None]
  - FATIGUE [None]
  - HEADACHE [None]
  - HYPERTENSION [None]
  - MYOCARDIAL ISCHAEMIA [None]
  - SYNCOPE [None]
  - TACHYCARDIA [None]
